FAERS Safety Report 22802778 (Version 4)
Quarter: 2023Q4

REPORT INFORMATION
  Report Type: Spontaneous
  Country: US (occurrence: US)
  Receive Date: 20230809
  Receipt Date: 20231101
  Transmission Date: 20240110
  Serious: Yes (Other)
  Sender: FDA-Public Use
  Company Number: US-PFIZER INC-202300266559

PATIENT
  Age: 13 Year
  Sex: Male

DRUGS (1)
  1. GENOTROPIN [Suspect]
     Active Substance: SOMATROPIN
     Indication: Hypothalamo-pituitary disorder
     Dosage: 1.6 MG, DAILY
     Dates: start: 20230725

REACTIONS (2)
  - Device malfunction [Recovering/Resolving]
  - Incorrect dose administered by device [Recovering/Resolving]

NARRATIVE: CASE EVENT DATE: 20230801
